FAERS Safety Report 10008958 (Version 1)
Quarter: 2014Q1

REPORT INFORMATION
  Report Type: Spontaneous
  Country: PL (occurrence: PL)
  Receive Date: 20140313
  Receipt Date: 20140313
  Transmission Date: 20141002
  Serious: Yes (Death, Hospitalization)
  Sender: FDA-Public Use
  Company Number: PHHY2014PL028004

PATIENT
  Age: 19 Year
  Sex: Female

DRUGS (7)
  1. RIFAMPICIN [Suspect]
  2. NOREPINEPHRINE [Suspect]
     Indication: BLOOD PRESSURE DECREASED
     Route: 041
  3. DOBUTAMINE [Suspect]
     Indication: BLOOD PRESSURE DECREASED
     Route: 041
  4. AMIODARONE [Suspect]
     Indication: ARRHYTHMIA
  5. ISONIAZID [Concomitant]
  6. PYRAZINAMIDE [Concomitant]
  7. KETOPROFEN [Concomitant]

REACTIONS (36)
  - Myocardial infarction [Fatal]
  - Chest pain [Fatal]
  - Electrocardiogram ST segment elevation [Fatal]
  - Acute left ventricular failure [Fatal]
  - Ejection fraction decreased [Fatal]
  - Cardiomyopathy [Fatal]
  - Cardiogenic shock [Fatal]
  - Cardiac arrest [Fatal]
  - Hyperventilation [Fatal]
  - Blood pressure decreased [Fatal]
  - Ventricular hypokinesia [Fatal]
  - Toxicity to various agents [Fatal]
  - Ventricular fibrillation [Fatal]
  - Arrhythmia [Fatal]
  - Sinus tachycardia [Fatal]
  - Bradycardia [Fatal]
  - Pulmonary oedema [Fatal]
  - Dyspnoea [Fatal]
  - Overdose [Fatal]
  - Suicide attempt [Unknown]
  - Respiratory alkalosis [Unknown]
  - Hypokalaemia [Unknown]
  - Metabolic acidosis [Unknown]
  - Tremor [Unknown]
  - Pruritus [Unknown]
  - Somnolence [Unknown]
  - Skin discolouration [Unknown]
  - Brain oedema [Unknown]
  - Restlessness [Unknown]
  - Nystagmus [Unknown]
  - Chromaturia [Unknown]
  - Hyperaemia [Unknown]
  - Vomiting [Unknown]
  - Nausea [Unknown]
  - Hyperhidrosis [Unknown]
  - Drug ineffective [Unknown]
